FAERS Safety Report 21501134 (Version 7)
Quarter: 2023Q1

REPORT INFORMATION
  Report Type: Spontaneous
  Country: JP (occurrence: JP)
  Receive Date: 20221025
  Receipt Date: 20230324
  Transmission Date: 20230418
  Serious: Yes (Hospitalization, Other)
  Sender: FDA-Public Use
  Company Number: JP-CHUGAI-2022041147

PATIENT
  Age: 67 Year
  Sex: Male
  Weight: 70 kg

DRUGS (20)
  1. HEMLIBRA [Suspect]
     Active Substance: EMICIZUMAB-KXWH
     Indication: Haemophilia A with anti factor VIII
     Route: 058
     Dates: start: 20180615, end: 20180706
  2. HEMLIBRA [Suspect]
     Active Substance: EMICIZUMAB-KXWH
     Route: 058
     Dates: start: 20180713, end: 2022
  3. HEMLIBRA [Suspect]
     Active Substance: EMICIZUMAB-KXWH
     Route: 058
  4. FEIBA [Suspect]
     Active Substance: ANTI-INHIBITOR COAGULANT COMPLEX
     Indication: Haemostasis
     Dosage: 3000 INTERNATIONAL UNIT
     Route: 042
     Dates: start: 20221014, end: 20221014
  5. FEIBA [Suspect]
     Active Substance: ANTI-INHIBITOR COAGULANT COMPLEX
     Dosage: 3000 INTERNATIONAL UNIT
     Route: 042
     Dates: start: 20221016, end: 20221016
  6. FEIBA [Suspect]
     Active Substance: ANTI-INHIBITOR COAGULANT COMPLEX
     Dosage: 3000 INTERNATIONAL UNIT
     Route: 042
     Dates: start: 20221017, end: 20221017
  7. FEIBA [Suspect]
     Active Substance: ANTI-INHIBITOR COAGULANT COMPLEX
     Dosage: 3000 INTERNATIONAL UNIT
     Route: 042
     Dates: start: 20221017, end: 20221017
  8. FEIBA [Suspect]
     Active Substance: ANTI-INHIBITOR COAGULANT COMPLEX
     Dosage: 3000 INTERNATIONAL UNIT
     Route: 042
     Dates: start: 20221018, end: 20221018
  9. FEIBA [Suspect]
     Active Substance: ANTI-INHIBITOR COAGULANT COMPLEX
     Dosage: 3000 INTERNATIONAL UNIT
     Route: 042
     Dates: start: 20221018, end: 20221018
  10. FEIBA [Suspect]
     Active Substance: ANTI-INHIBITOR COAGULANT COMPLEX
     Dosage: 3000 INTERNATIONAL UNIT
     Route: 042
     Dates: start: 20221019, end: 20221019
  11. FEIBA [Suspect]
     Active Substance: ANTI-INHIBITOR COAGULANT COMPLEX
     Dosage: 3000 INTERNATIONAL UNIT?MOST RECENT DOSE ON 20/OCT/2022 01:16
     Route: 042
     Dates: start: 20221020
  12. NOVOSEVEN [Suspect]
     Active Substance: COAGULATION FACTOR VIIA RECOMBINANT HUMAN
     Indication: Haemostasis
     Dosage: 5 MILLIGRAM,4 TIMES/DAY
     Route: 042
     Dates: start: 20221015, end: 20221015
  13. NOVOSEVEN [Suspect]
     Active Substance: COAGULATION FACTOR VIIA RECOMBINANT HUMAN
     Dosage: 5 MILLIGRAM, 6 TIMES/DAY
     Route: 042
     Dates: start: 20221016, end: 20221016
  14. NOVOSEVEN [Suspect]
     Active Substance: COAGULATION FACTOR VIIA RECOMBINANT HUMAN
     Dosage: 5 MILLIGRAM, QD
     Route: 042
     Dates: start: 20221020, end: 20221020
  15. NOVOSEVEN [Suspect]
     Active Substance: COAGULATION FACTOR VIIA RECOMBINANT HUMAN
     Dosage: 5 MILLIGRAM, 8 TIMES/DAY
     Route: 042
     Dates: start: 20221021, end: 20221023
  16. NOVOSEVEN [Suspect]
     Active Substance: COAGULATION FACTOR VIIA RECOMBINANT HUMAN
     Dosage: 5 MILLIGRAM, 7 TIMES/DAY
     Route: 042
     Dates: start: 20221024, end: 20221024
  17. NOVOSEVEN [Suspect]
     Active Substance: COAGULATION FACTOR VIIA RECOMBINANT HUMAN
     Dosage: 5 MILLIGRAM, QD
     Route: 042
     Dates: start: 20221025, end: 20221025
  18. NOVOSEVEN [Suspect]
     Active Substance: COAGULATION FACTOR VIIA RECOMBINANT HUMAN
     Dosage: 5 MILLIGRAM, 5 TIMES/DAY
     Route: 042
     Dates: start: 20221031, end: 20221101
  19. NOVOSEVEN [Suspect]
     Active Substance: COAGULATION FACTOR VIIA RECOMBINANT HUMAN
     Dosage: 5 MILLIGRAM, QD?MOST RECENT DOSE ON 07/NOV/2022 14:36
     Route: 042
     Dates: start: 20221107
  20. TRANSAMIN [Concomitant]
     Active Substance: TRANEXAMIC ACID
     Indication: Haemostasis
     Dosage: 10 MILLILITER, QD
     Route: 041
     Dates: start: 20221014, end: 20221020

REACTIONS (4)
  - Thrombotic microangiopathy [Recovered/Resolved]
  - Diverticulum intestinal haemorrhagic [Recovered/Resolved]
  - Prothrombin level increased [Unknown]
  - Device related infection [Unknown]

NARRATIVE: CASE EVENT DATE: 20221014
